FAERS Safety Report 5165089-3 (Version None)
Quarter: 2006Q4

REPORT INFORMATION
  Report Type: 
  Country: None (occurrence: None)
  Receive Date: 20061127
  Receipt Date: 20061113
  Transmission Date: 20070319
  Serious: Yes (Other)
  Sender: FDA-Public Use
  Company Number: 15136

PATIENT
  Age: 52 Year
  Sex: Male

DRUGS (5)
  1. FLUOROURACIL [Suspect]
     Indication: RECTAL CANCER STAGE IV
     Dosage: 400 MG/M2 PER_CYCLE PU
  2. FLUOROURACIL [Suspect]
     Indication: RECTAL CANCER STAGE IV
     Dosage: 2400 MG/M2 PER_CYCLE OTHER
  3. IRINOTECAN HCL [Suspect]
     Indication: RECTAL CANCER STAGE IV
     Dosage: 180 MG/M2 PER_CYCLE
  4. LEUCOVORIN CALCIUM [Suspect]
     Indication: RECTAL CANCER STAGE IV
     Dosage: 400 MG/M2 PER_CYCLE
  5. AVASTIN [Suspect]
     Indication: RECTAL CANCER STAGE IV
     Dosage: 5 MG/KG PER_CYCLE

REACTIONS (17)
  - AGITATION [None]
  - ANAEMIA [None]
  - APHASIA [None]
  - BLINDNESS [None]
  - BLINDNESS CORTICAL [None]
  - BLOOD PRESSURE SYSTOLIC INCREASED [None]
  - BONE LESION [None]
  - CONFUSIONAL STATE [None]
  - DIARRHOEA [None]
  - FEBRILE NEUTROPENIA [None]
  - GRAND MAL CONVULSION [None]
  - HAEMATOCRIT DECREASED [None]
  - HEADACHE [None]
  - PROTEINURIA [None]
  - REVERSIBLE POSTERIOR LEUKOENCEPHALOPATHY SYNDROME [None]
  - SPINAL CORD COMPRESSION [None]
  - THROMBOCYTOPENIA [None]
